FAERS Safety Report 5844280-4 (Version None)
Quarter: 2008Q3

REPORT INFORMATION
  Report Type: 
  Country: None (occurrence: None)
  Receive Date: 20080731
  Receipt Date: 20080501
  Transmission Date: 20090109
  Serious: No
  Sender: FDA-Public Use
  Company Number: US200804006846

PATIENT
  Age: 70 Year
  Sex: Female
  Weight: 108.8 kg

DRUGS (5)
  1. BYETTA [Suspect]
     Indication: TYPE 2 DIABETES MELLITUS
     Dosage: 5 UG, 2/D, SUBCUTANEOUS
     Route: 058
     Dates: start: 20080426
  2. GLYBURIDE [Concomitant]
  3. METFORMIN HCL [Concomitant]
  4. SINGULAIR [Concomitant]
  5. QVAR [Concomitant]

REACTIONS (6)
  - ABDOMINAL PAIN UPPER [None]
  - BLOOD GLUCOSE INCREASED [None]
  - COUGH [None]
  - DYSPEPSIA [None]
  - NAUSEA [None]
  - RESPIRATORY TRACT CONGESTION [None]
